FAERS Safety Report 25153727 (Version 4)
Quarter: 2025Q3

REPORT INFORMATION
  Report Type: Spontaneous
  Country: CA (occurrence: CA)
  Receive Date: 20250403
  Receipt Date: 20250810
  Transmission Date: 20251021
  Serious: Yes (Death, Hospitalization, Other)
  Sender: ALEXION PHARMACEUTICALS
  Company Number: CA-AstraZeneca-CH-00833182A

PATIENT
  Age: 50 Year
  Sex: Female

DRUGS (12)
  1. FASLODEX [Suspect]
     Active Substance: FULVESTRANT
     Route: 065
  2. FASLODEX [Suspect]
     Active Substance: FULVESTRANT
  3. NOLVADEX [Suspect]
     Active Substance: TAMOXIFEN CITRATE
     Route: 065
  4. NOLVADEX [Suspect]
     Active Substance: TAMOXIFEN CITRATE
     Route: 065
  5. NOLVADEX [Suspect]
     Active Substance: TAMOXIFEN CITRATE
     Route: 065
  6. NOLVADEX [Suspect]
     Active Substance: TAMOXIFEN CITRATE
     Route: 065
  7. GOSERELIN [Suspect]
     Active Substance: GOSERELIN
     Route: 065
  8. PARAPLATIN [Concomitant]
     Active Substance: CARBOPLATIN
     Route: 065
  9. TAXOL [Concomitant]
     Active Substance: PACLITAXEL
     Route: 065
  10. IBRANCE [Concomitant]
     Active Substance: PALBOCICLIB
     Route: 065
  11. TESETAXEL [Concomitant]
     Active Substance: TESETAXEL
     Route: 065
  12. XELODA [Concomitant]
     Active Substance: CAPECITABINE
     Route: 065

REACTIONS (18)
  - Death [Fatal]
  - Suspected counterfeit product [Unknown]
  - Skeletal injury [Unknown]
  - Hepatic neoplasm [Unknown]
  - Metastases to eye [Unknown]
  - Mucosal inflammation [Unknown]
  - Neutropenia [Unknown]
  - Liver disorder [Unknown]
  - Dyspnoea [Unknown]
  - Tachycardia [Unknown]
  - Paraesthesia [Unknown]
  - Bone cancer [Unknown]
  - Drug hypersensitivity [Unknown]
  - Drug intolerance [Unknown]
  - Acute kidney injury [Unknown]
  - Fluid intake reduced [Unknown]
  - Tumour marker increased [Unknown]
  - Metastases to liver [Unknown]

NARRATIVE: CASE EVENT DATE: 20240101
